FAERS Safety Report 17218295 (Version 1)
Quarter: 2019Q4

REPORT INFORMATION
  Report Type: Spontaneous
  Country: JP (occurrence: JP)
  Receive Date: 20191231
  Receipt Date: 20191231
  Transmission Date: 20200122
  Serious: Yes (Death)
  Sender: FDA-Public Use
  Company Number: JP-ALVOGEN-2019-ALVOGEN-102233

PATIENT
  Age: 64 Year
  Sex: Male

DRUGS (9)
  1. VORICONAZOLE. [Suspect]
     Active Substance: VORICONAZOLE
     Indication: BRONCHOPULMONARY ASPERGILLOSIS
  2. PIPERACILLIN/TAZOBACTAM [Suspect]
     Active Substance: PIPERACILLIN SODIUM\TAZOBACTAM SODIUM
     Indication: BRONCHOPULMONARY ASPERGILLOSIS
  3. CETUXIMAB. [Concomitant]
     Active Substance: CETUXIMAB
     Indication: TONGUE CANCER RECURRENT
  4. CETUXIMAB. [Concomitant]
     Active Substance: CETUXIMAB
     Indication: CHEMOTHERAPY
  5. MICAFUNGIN. [Suspect]
     Active Substance: MICAFUNGIN SODIUM
     Indication: BRONCHOPULMONARY ASPERGILLOSIS
  6. LEVOFLOXACIN. [Concomitant]
     Active Substance: LEVOFLOXACIN
     Indication: PNEUMONIA BACTERIAL
  7. MEROPENEM. [Concomitant]
     Active Substance: MEROPENEM
     Indication: RESPIRATORY DISORDER
  8. LINEZOLID. [Concomitant]
     Active Substance: LINEZOLID
     Indication: RESPIRATORY DISORDER
  9. PACLITAXEL. [Concomitant]
     Active Substance: PACLITAXEL
     Indication: CHEMOTHERAPY

REACTIONS (3)
  - Organ failure [Fatal]
  - Bronchopulmonary aspergillosis [Fatal]
  - Drug resistance [Fatal]
